FAERS Safety Report 5447018-8 (Version None)
Quarter: 2007Q3

REPORT INFORMATION
  Report Type: 
  Country: None (occurrence: None)
  Receive Date: 20070810
  Receipt Date: 20070220
  Transmission Date: 20080115
  Serious: Yes (Other)
  Sender: FDA-Public Use
  Company Number: 2005387

PATIENT
  Age: 80 Year
  Sex: Female

DRUGS (2)
  1. VISUDYNE [Suspect]
     Indication: MACULAR DEGENERATION
     Dosage: 6 MG/M^2 ONCE IV
     Route: 042
     Dates: start: 20040324, end: 20040324
  2. KENALOG-40 [Suspect]
     Indication: MACULAR DEGENERATION
     Dates: start: 20040324, end: 20040324

REACTIONS (1)
  - VISUAL ACUITY REDUCED [None]
